FAERS Safety Report 10313523 (Version 2)
Quarter: 2014Q3

REPORT INFORMATION
  Report Type: Spontaneous
  Country: US (occurrence: None)
  Receive Date: 20140716
  Receipt Date: 20140825
  Transmission Date: 20150326
  Serious: Yes (Hospitalization)
  Sender: FDA-Public Use
  Company Number: UNT-2014-003501

PATIENT
  Sex: Female

DRUGS (1)
  1. ORENITRAM [Suspect]
     Active Substance: TREPROSTINIL
     Indication: PULMONARY HYPERTENSION
     Route: 048
     Dates: start: 20140508

REACTIONS (6)
  - Subdural haemorrhage [None]
  - Loss of consciousness [None]
  - Syncope [None]
  - Laceration [None]
  - Choking [None]
  - Fall [None]

NARRATIVE: CASE EVENT DATE: 20140607
